FAERS Safety Report 26024337 (Version 1)
Quarter: 2025Q4

REPORT INFORMATION
  Report Type: Spontaneous
  Country: US (occurrence: US)
  Receive Date: 20251111
  Receipt Date: 20251111
  Transmission Date: 20260117
  Serious: No
  Sender: TOLMAR
  Company Number: US-Tolmar-TLM-2025-08154

PATIENT
  Sex: Female

DRUGS (4)
  1. ELIGARD [Suspect]
     Active Substance: LEUPROLIDE ACETATE
     Indication: Breast cancer
     Dosage: SN#:5743645946027?GTIN:00362935227106?NDC: 62935-227-10?SYRINGE A: 15369AUS EXP: 01-2027?SYRINGE B:
  2. ELIGARD [Suspect]
     Active Substance: LEUPROLIDE ACETATE
     Dosage: REPLACEMENT DOSE
  3. ELIGARD [Suspect]
     Active Substance: LEUPROLIDE ACETATE
     Dosage: THERAPY START
  4. DEVICE [Suspect]
     Active Substance: DEVICE
     Indication: Breast cancer
     Dosage: SN#:5743645946027?GTIN:00362935227106?NDC: 62935-227-10?SYRINGE A: 15369AUS EXP: 01-2027?SYRINGE B:

REACTIONS (3)
  - Off label use [Unknown]
  - Intercepted product preparation error [Unknown]
  - Device leakage [Unknown]

NARRATIVE: CASE EVENT DATE: 20250825
